FAERS Safety Report 9275521 (Version 2)
Quarter: 2013Q4

REPORT INFORMATION
  Report Type: Spontaneous
  Country: US (occurrence: US)
  Receive Date: 20130507
  Receipt Date: 20131231
  Transmission Date: 20140711
  Serious: No
  Sender: FDA-Public Use
  Company Number: US-PFIZER INC-2013138239

PATIENT
  Age: 42 Year
  Sex: Male
  Weight: 95.24 kg

DRUGS (4)
  1. SOMAVERT [Suspect]
     Indication: ACROMEGALY
     Dosage: 60 MG, 1X/DAY
     Dates: start: 201304
  2. SYNTHROID [Concomitant]
     Indication: HYPERTHYROIDISM
     Dosage: 137 UG, 1X/DAY
  3. AXIRON [Concomitant]
     Dosage: 60 MG, 1X/DAY
  4. CORTISONE [Concomitant]
     Dosage: 25 MG, 1X/DAY

REACTIONS (3)
  - Ocular hyperaemia [Not Recovered/Not Resolved]
  - Eye swelling [Not Recovered/Not Resolved]
  - Eye pruritus [Not Recovered/Not Resolved]
